FAERS Safety Report 24216180 (Version 1)
Quarter: 2024Q3

REPORT INFORMATION
  Report Type: Spontaneous
  Country: CA (occurrence: CA)
  Receive Date: 20240816
  Receipt Date: 20240816
  Transmission Date: 20241017
  Serious: Yes (Other)
  Sender: TEVA
  Company Number: CA-TEVA-VS-3230880

PATIENT
  Age: 66 Year
  Sex: Female
  Weight: 94 kg

DRUGS (4)
  1. PREDNISONE [Suspect]
     Active Substance: PREDNISONE
     Indication: Product used for unknown indication
     Route: 065
  2. INFLECTRA [Suspect]
     Active Substance: INFLIXIMAB-DYYB
     Indication: Rheumatoid arthritis
     Dosage: INDUCTION WEEKS 0, 2, 6, MAINTENANCE EVERY 8 WEEKS
     Route: 042
     Dates: start: 20240213
  3. INFLECTRA [Suspect]
     Active Substance: INFLIXIMAB-DYYB
     Indication: Rheumatoid arthritis
     Dosage: INDUCTION WEEKS 0, 2, 6, MAINTENANCE EVERY 8 WEEKS
     Route: 042
     Dates: start: 20240521
  4. INFLECTRA [Suspect]
     Active Substance: INFLIXIMAB-DYYB
     Indication: Rheumatoid arthritis
     Dosage: AFTER EVERY 8 WEEKS AND 1 DAY (INDUCTION WEEKS 0, 2, 6, MAINTENANCE EVERY 8 WEEKS)
     Route: 042
     Dates: start: 20240717

REACTIONS (1)
  - Addison^s disease [Unknown]

NARRATIVE: CASE EVENT DATE: 20240101
